FAERS Safety Report 8837234 (Version 1)
Quarter: 2012Q4

REPORT INFORMATION
  Report Type: Spontaneous
  Country: US (occurrence: None)
  Receive Date: 20121011
  Receipt Date: 20121011
  Transmission Date: 20130627
  Serious: No
  Sender: FDA-Public Use
  Company Number: None

PATIENT
  Sex: Male

DRUGS (6)
  1. LAMICTAL [Suspect]
     Indication: ANGER
     Dosage: lamictal DAW 250 mg 1/1 bid #60 5 refills
  2. LAMICTAL [Suspect]
     Indication: ASPERGER^S DISORDER
     Dosage: lamictal DAW 250 mg 1/1 bid #60 5 refills
  3. LAMICTAL [Suspect]
     Indication: UNEVALUABLE EVENT
     Dosage: lamictal DAW 250 mg 1/1 bid #60 5 refills
  4. LAMICTAL [Suspect]
     Indication: IRRITABILITY
     Dosage: lamictal DAW 250 mg 1/1 bid #60 5 refills
  5. LAMICTAL [Suspect]
     Indication: ADHD
     Dosage: lamictal DAW 250 mg 1/1 bid #60 5 refills
  6. LAMICTAL [Suspect]
     Indication: BIPOLAR DISORDER
     Dosage: lamictal DAW 250 mg 1/1 bid #60 5 refills

REACTIONS (1)
  - Drug ineffective [None]
